FAERS Safety Report 4396048-6 (Version None)
Quarter: 2004Q2

REPORT INFORMATION
  Report Type: 
  Country: None (occurrence: None)
  Receive Date: 20040621
  Receipt Date: 20031117
  Transmission Date: 20050107
  Serious: Yes (Death)
  Sender: FDA-Public Use
  Company Number: USA-2003-0010839

PATIENT
  Age: 22 Year
  Sex: Female
  Weight: 59 kg

DRUGS (13)
  1. OXYCODONE HCL [Suspect]
  2. COCAINE (COCAINE) [Suspect]
  3. ALPRAZOLAM [Suspect]
  4. METAMFETAMINE (METAMFETAMINE) [Suspect]
  5. AMPHETAMINE SULFATE TAB [Suspect]
  6. CANNABIS (CANNABIS) [Suspect]
  7. PHENYLPROPANOLAMINE HCL [Suspect]
  8. EPHEDRINE (EPHEDRINE) [Suspect]
  9. PSEUDOEPHEDRINE (PSEUDOEPHEDRINE) [Suspect]
  10. DEPAKOTE [Concomitant]
  11. RISPERDAL [Concomitant]
  12. PAXIL [Concomitant]
  13. BUSPAR [Concomitant]

REACTIONS (2)
  - ACCIDENTAL OVERDOSE [None]
  - MULTIPLE DRUG OVERDOSE [None]
